FAERS Safety Report 6639809-2 (Version None)
Quarter: 2010Q1

REPORT INFORMATION
  Report Type: 
  Country: None (occurrence: None)
  Receive Date: 20100315
  Receipt Date: 20100304
  Transmission Date: 20100710
  Serious: Yes (Life-Threatening, Hospitalization)
  Sender: FDA-Public Use
  Company Number: 96316

PATIENT
  Age: 22 Year
  Sex: Female

DRUGS (1)
  1. NOREPINEPHRINE BITARTRATE [Suspect]
     Indication: BRAIN OEDEMA
     Dosage: 0.8-1 UG/KG/MIN

REACTIONS (4)
  - CARDIOMYOPATHY [None]
  - HYPOKINESIA [None]
  - LEFT VENTRICULAR DYSFUNCTION [None]
  - SINUS TACHYCARDIA [None]
